FAERS Safety Report 4321181-4 (Version None)
Quarter: 2004Q1

REPORT INFORMATION
  Report Type: 
  Country: None (occurrence: None)
  Receive Date: 20040322
  Receipt Date: 20040309
  Transmission Date: 20041129
  Serious: Yes (Other)
  Sender: FDA-Public Use
  Company Number: WAES 0403GBR00105

PATIENT
  Age: 73 Year
  Sex: Male

DRUGS (8)
  1. DIGOXIN [Concomitant]
     Indication: ATRIAL FIBRILLATION
     Route: 048
     Dates: start: 20021001, end: 20030601
  2. ZETIA [Suspect]
     Indication: HYPERLIPIDAEMIA
     Route: 048
     Dates: start: 20040104, end: 20040109
  3. ZETIA [Suspect]
     Route: 048
     Dates: start: 20031121, end: 20031128
  4. FUROSEMIDE [Concomitant]
     Indication: OEDEMA
     Route: 048
     Dates: start: 20020901
  5. PRAVASTATIN SODIUM [Concomitant]
     Indication: HYPERLIPIDAEMIA
     Route: 048
     Dates: start: 19991201
  6. RAMIPRIL [Concomitant]
     Route: 048
     Dates: start: 20021001
  7. RANITIDINE [Concomitant]
     Route: 048
     Dates: start: 19990601
  8. WARFARIN [Concomitant]
     Indication: ATRIAL FIBRILLATION
     Route: 047
     Dates: start: 19990601

REACTIONS (3)
  - DIZZINESS [None]
  - FATIGUE [None]
  - NAUSEA [None]
